FAERS Safety Report 9786982 (Version 1)
Quarter: 2013Q4

REPORT INFORMATION
  Report Type: Spontaneous
  Country: PL (occurrence: PL)
  Receive Date: 20131227
  Receipt Date: 20131227
  Transmission Date: 20140711
  Serious: Yes (Other)
  Sender: FDA-Public Use
  Company Number: CHPA2013PL018814

PATIENT
  Sex: Female

DRUGS (7)
  1. OTRIVIN [Suspect]
     Indication: RHINITIS
     Dosage: UNK, ONCE/SINGLE
     Route: 045
     Dates: start: 20131219, end: 20131219
  2. ACCUPRO [Concomitant]
     Dosage: UNK
  3. CAVINTON [Concomitant]
     Dosage: UNK
  4. BETASERC [Concomitant]
     Dosage: UNK
  5. OXYCARDIL [Concomitant]
     Dosage: UNK
  6. SPIRONOL [Concomitant]
     Dosage: UNK
  7. MOLSIDOMINA [Concomitant]
     Dosage: UNK

REACTIONS (1)
  - Hypertension [Recovered/Resolved]
